FAERS Safety Report 9585739 (Version 1)
Quarter: 2013Q4

REPORT INFORMATION
  Report Type: Spontaneous
  Country: US (occurrence: None)
  Receive Date: 20131002
  Receipt Date: 20131002
  Transmission Date: 20140711
  Serious: Yes (Death)
  Sender: FDA-Public Use
  Company Number: None

PATIENT
  Age: 66 Year
  Sex: Female

DRUGS (1)
  1. XELODA [Suspect]
     Indication: RETROPERITONEAL CANCER
     Route: 048
     Dates: start: 20130620, end: 201308

REACTIONS (2)
  - Malignant neoplasm progression [None]
  - Unevaluable event [None]
